FAERS Safety Report 6849572-8 (Version None)
Quarter: 2010Q3

REPORT INFORMATION
  Report Type: 
  Country: None (occurrence: None)
  Receive Date: 20100716
  Receipt Date: 20100705
  Transmission Date: 20110219
  Serious: Yes (Other)
  Sender: FDA-Public Use
  Company Number: DE-ELI_LILLY_AND_COMPANY-DE201005004687

PATIENT
  Age: 73 Year
  Sex: Female
  Weight: 57 kg

DRUGS (1)
  1. FORTEO [Suspect]
     Dosage: UNK, UNK
     Route: 058
     Dates: end: 20100501

REACTIONS (3)
  - ABDOMINAL DISCOMFORT [None]
  - GALLBLADDER DISORDER [None]
  - VOMITING [None]
